FAERS Safety Report 8097710-4 (Version None)
Quarter: 2012Q1

REPORT INFORMATION
  Report Type: 
  Country: None (occurrence: None)
  Receive Date: 20120128
  Receipt Date: 20110714
  Transmission Date: 20120608
  Serious: No
  Sender: FDA-Public Use
  Company Number: US-ABBOTT-11P-163-0839086-00

PATIENT
  Age: 51 Year
  Sex: Male

DRUGS (3)
  1. LOSARTAN POTASSIUM [Concomitant]
     Indication: PRODUCT USED FOR UNKNOWN INDICATION
  2. VERAPAMIL [Concomitant]
     Indication: PRODUCT USED FOR UNKNOWN INDICATION
  3. HUMIRA [Suspect]
     Indication: PSORIATIC ARTHROPATHY
     Dates: start: 20101101, end: 20110301

REACTIONS (4)
  - ARTHRALGIA [None]
  - ARTHRITIS [None]
  - DRUG INEFFECTIVE [None]
  - CHEST PAIN [None]
